FAERS Safety Report 25154796 (Version 1)
Quarter: 2025Q2

REPORT INFORMATION
  Report Type: Spontaneous
  Country: US (occurrence: None)
  Receive Date: 20250403
  Receipt Date: 20250403
  Transmission Date: 20250716
  Serious: Yes (Hospitalization)
  Sender: FDA-CTU
  Company Number: None

PATIENT
  Age: 34 Year
  Sex: Male
  Weight: 77.6 kg

DRUGS (4)
  1. CISPLATIN [Suspect]
     Active Substance: CISPLATIN
  2. FILGRASTIM [Suspect]
     Active Substance: FILGRASTIM
  3. IFOSFAMIDE [Suspect]
     Active Substance: IFOSFAMIDE
  4. PACLITAXEL [Suspect]
     Active Substance: PACLITAXEL

REACTIONS (1)
  - Pyrexia [None]

NARRATIVE: CASE EVENT DATE: 20220725
